FAERS Safety Report 7370251-5 (Version None)
Quarter: 2011Q1

REPORT INFORMATION
  Report Type: 
  Country: None (occurrence: None)
  Receive Date: 20110323
  Receipt Date: 20110316
  Transmission Date: 20110831
  Serious: Yes (Death, Hospitalization)
  Sender: FDA-Public Use
  Company Number: PHHO2011FR02217

PATIENT
  Sex: Male
  Weight: 80 kg

DRUGS (17)
  1. MYFORTIC [Concomitant]
  2. POLYGAM S/D [Concomitant]
  3. ALBUMIN (HUMAN) [Concomitant]
  4. ZELITREX [Concomitant]
  5. VITAMIN A [Concomitant]
  6. NIPENT [Concomitant]
  7. IMOVANE [Concomitant]
  8. STI571/CGP57148B [Suspect]
     Indication: ACUTE LYMPHOCYTIC LEUKAEMIA
     Dosage: UNK
     Route: 048
     Dates: start: 20061004, end: 20061201
  9. STEROGYL [Concomitant]
  10. CORTANCYL [Concomitant]
  11. LASIX [Concomitant]
  12. ALDACTONE [Concomitant]
  13. OMEPRAZOLE [Concomitant]
  14. TOBRADEX [Concomitant]
  15. PREVISCAN [Concomitant]
  16. NOXAFIL [Concomitant]
  17. CLONIDINE HCL [Concomitant]

REACTIONS (16)
  - PYREXIA [None]
  - HYPOVENTILATION [None]
  - SEPTIC SHOCK [None]
  - SHOCK [None]
  - ACUTE RESPIRATORY FAILURE [None]
  - DYSPNOEA [None]
  - PERICARDIAL EFFUSION [None]
  - PRODUCTIVE COUGH [None]
  - PLEURAL EFFUSION [None]
  - ENDOTRACHEAL INTUBATION [None]
  - ACUTE RESPIRATORY DISTRESS SYNDROME [None]
  - RENAL FAILURE ACUTE [None]
  - LUNG DISORDER [None]
  - MECHANICAL VENTILATION [None]
  - HYPOXIA [None]
  - MULTI-ORGAN FAILURE [None]
